FAERS Safety Report 5002745-1 (Version None)
Quarter: 2006Q2

REPORT INFORMATION
  Report Type: 
  Country: None (occurrence: None)
  Receive Date: 20060512
  Receipt Date: 20060504
  Transmission Date: 20061013
  Serious: Yes (Other)
  Sender: FDA-Public Use
  Company Number: 2006060691

PATIENT
  Sex: Male

DRUGS (3)
  1. LYRICA [Suspect]
     Indication: NEUROPATHY PERIPHERAL
     Dosage: 150 MG (50 MG, 3 IN 1 D)
     Dates: start: 20060401, end: 20060501
  2. NEURONTIN [Suspect]
     Indication: NEUROPATHY PERIPHERAL
     Dosage: 1800 MB (900 MG, 3 IN 1 D)
     Dates: end: 20060101
  3. COUMADIN [Concomitant]

REACTIONS (2)
  - DRUG INEFFECTIVE [None]
  - INTERNATIONAL NORMALISED RATIO INCREASED [None]
